FAERS Safety Report 8969723 (Version 1)
Quarter: 2012Q4

REPORT INFORMATION
  Report Type: 
  Country: US (occurrence: US)
  Receive Date: 20121218
  Receipt Date: 20121218
  Transmission Date: 20130627
  Serious: No
  Sender: FDA-Public Use
  Company Number: US-ABBOTT-11P-163-0885541-00

PATIENT
  Sex: Female

DRUGS (2)
  1. PROMETRIUM [Suspect]
     Indication: ENDOMETRIOSIS
     Route: 067
  2. PROMETRIUM [Suspect]
     Dosage: One every other night
     Route: 067

REACTIONS (2)
  - Off label use [Unknown]
  - Incorrect dose administered [Unknown]
